FAERS Safety Report 9430177 (Version 1)
Quarter: 2013Q3

REPORT INFORMATION
  Report Type: Spontaneous
  Country: ES (occurrence: ES)
  Receive Date: 20130730
  Receipt Date: 20130730
  Transmission Date: 20140515
  Serious: Yes (Hospitalization)
  Sender: FDA-Public Use
  Company Number: ES-JNJFOC-20130715312

PATIENT
  Age: 54 Year
  Sex: Female

DRUGS (7)
  1. REMICADE [Suspect]
     Indication: COLITIS ULCERATIVE
     Dosage: 3RD DOSE OF INDUCTION
     Route: 042
     Dates: end: 2013
  2. REMICADE [Suspect]
     Indication: COLITIS ULCERATIVE
     Dosage: INDUCTION DOSES AT 0 AND 2 WEEKS
     Route: 042
     Dates: start: 201304
  3. MESALAZINE [Concomitant]
     Route: 048
  4. PREDNISONE [Concomitant]
     Route: 065
  5. LOPERAMIDE [Concomitant]
     Route: 065
  6. PARACETAMOL [Concomitant]
     Route: 065
  7. OMEPRAZOLE [Concomitant]
     Route: 065

REACTIONS (4)
  - Ischaemic stroke [Unknown]
  - Glioblastoma multiforme [Unknown]
  - Demyelination [Unknown]
  - Colitis ulcerative [Unknown]
